FAERS Safety Report 8849423 (Version 2)
Quarter: 2013Q2

REPORT INFORMATION
  Report Type: Spontaneous
  Country: US (occurrence: None)
  Receive Date: 20120426
  Receipt Date: 20120703
  Transmission Date: 20140414
  Serious: No
  Sender: FDA-Public Use
  Company Number: PHEH2012US004243

PATIENT
  Sex: Female

DRUGS (2)
  1. GILENYA (FTY) CAPSULE 0.5MG [Suspect]
     Route: 048
     Dates: start: 201105, end: 201110
  2. STEROIDS NOS (NO INGREDIENTS/SUBSTANCES) [Concomitant]

REACTIONS (3)
  - Contusion [None]
  - Mood swings [None]
  - Mood altered [None]
